FAERS Safety Report 17427997 (Version 3)
Quarter: 2020Q1

REPORT INFORMATION
  Report Type: Report from Study
  Country: US (occurrence: US)
  Receive Date: 20200217
  Receipt Date: 20200323
  Transmission Date: 20200409
  Serious: Yes (Other)
  Sender: FDA-Public Use
  Company Number: US-B.I. PHARMACEUTICALS,INC./RIDGEFIELD-2019-MR-000886

PATIENT
  Age: 87 Year
  Sex: Male
  Weight: 59.45 kg

DRUGS (2)
  1. OFEV [Suspect]
     Active Substance: NINTEDANIB
     Route: 048
  2. OFEV [Suspect]
     Active Substance: NINTEDANIB
     Indication: PULMONARY FIBROSIS
     Dosage: 100 MG BID
     Route: 048
     Dates: start: 20190813, end: 20191029

REACTIONS (10)
  - Off label use [Unknown]
  - Diarrhoea [Not Recovered/Not Resolved]
  - Blood pressure fluctuation [Unknown]
  - Chills [Unknown]
  - Asthenia [Not Recovered/Not Resolved]
  - Pulmonary haemorrhage [Unknown]
  - Haemoptysis [Unknown]
  - Haemoptysis [Recovered/Resolved]
  - Epistaxis [Unknown]
  - Pyrexia [Unknown]

NARRATIVE: CASE EVENT DATE: 20190818
